FAERS Safety Report 10101727 (Version 1)
Quarter: 2014Q2

REPORT INFORMATION
  Report Type: Spontaneous
  Country: US (occurrence: None)
  Receive Date: 20140423
  Receipt Date: 20140423
  Transmission Date: 20141212
  Serious: No
  Sender: FDA-Public Use
  Company Number: None

PATIENT
  Age: 31 Year
  Sex: Female
  Weight: 56.7 kg

DRUGS (1)
  1. LAMICTAL 100 [Suspect]
     Indication: BIPOLAR II DISORDER
     Dosage: 1 PILL  TWICE DAILY TAKEN BY MOUTH
     Route: 048
     Dates: start: 20070101, end: 20140224

REACTIONS (10)
  - Discomfort [None]
  - Suicidal ideation [None]
  - Depression [None]
  - Memory impairment [None]
  - Flat affect [None]
  - Thinking abnormal [None]
  - Dysphemia [None]
  - Bruxism [None]
  - Muscle twitching [None]
  - Abnormal behaviour [None]
